FAERS Safety Report 5457946-5 (Version None)
Quarter: 2007Q3

REPORT INFORMATION
  Report Type: 
  Country: None (occurrence: None)
  Receive Date: 20070917
  Receipt Date: 20070830
  Transmission Date: 20080115
  Serious: Yes (Hospitalization)
  Sender: FDA-Public Use
  Company Number: 2005BI007269

PATIENT
  Age: 59 Year
  Sex: Male
  Weight: 115.2136 kg

DRUGS (11)
  1. NATALIZUMAB [Suspect]
     Indication: MULTIPLE SCLEROSIS
     Dosage: 300 MG; QM; IV
     Route: 042
     Dates: start: 20041201, end: 20050201
  2. VICODIN [Concomitant]
  3. LOPRESSOR [Concomitant]
  4. EFFEXOR [Concomitant]
  5. QUININE SULFATE [Concomitant]
  6. PROTONIX [Concomitant]
  7. PLAVIX [Concomitant]
  8. NEURONTIN [Concomitant]
  9. BACLOFEN [Concomitant]
  10. TUMS [Concomitant]
  11. NIASPAN [Concomitant]

REACTIONS (7)
  - BLOOD DISORDER [None]
  - CHEST PAIN [None]
  - COMA [None]
  - DYSPNOEA [None]
  - FLUID RETENTION [None]
  - MYOCARDIAL INFARCTION [None]
  - PNEUMONIA [None]
